FAERS Safety Report 8251637-3 (Version None)
Quarter: 2012Q2

REPORT INFORMATION
  Report Type: 
  Country: None (occurrence: None)
  Receive Date: 20120402
  Receipt Date: 20111227
  Transmission Date: 20120825
  Serious: No
  Sender: FDA-Public Use
  Company Number: US-ABBOTT-11P-163-0886991-00

PATIENT
  Sex: Male

DRUGS (3)
  1. GEMFIBROZIL [Concomitant]
     Indication: BLOOD CHOLESTEROL INCREASED
     Route: 048
  2. ANDROGEL [Suspect]
     Indication: BLOOD TESTOSTERONE DECREASED
     Dosage: PUMP, 1 IN 1 DAY
     Route: 061
     Dates: start: 20111223
  3. DOXAZOSIN MESYLATE [Concomitant]
     Indication: URINARY RETENTION
     Dates: start: 20030101

REACTIONS (2)
  - POLLAKIURIA [None]
  - DYSURIA [None]
